FAERS Safety Report 16243045 (Version 1)
Quarter: 2019Q2

REPORT INFORMATION
  Report Type: Spontaneous
  Country: CA (occurrence: CA)
  Receive Date: 20190426
  Receipt Date: 20190426
  Transmission Date: 20190711
  Serious: Yes (Hospitalization, Other)
  Sender: FDA-Public Use
  Company Number: CA-TEVA-2019-CA-1041525

PATIENT
  Age: 61 Year
  Sex: Female

DRUGS (3)
  1. ACYCLOVIR. [Suspect]
     Active Substance: ACYCLOVIR
     Indication: INFECTION
     Route: 042
  2. VALTREX [Suspect]
     Active Substance: VALACYCLOVIR HYDROCHLORIDE
     Indication: INFECTION
     Route: 065
  3. CEPHALEXIN. [Suspect]
     Active Substance: CEPHALEXIN
     Indication: INFECTION
     Route: 065

REACTIONS (4)
  - Seizure like phenomena [Recovered/Resolved]
  - Aphasia [Recovered/Resolved]
  - Paralysis [Recovered/Resolved]
  - Muscle contractions involuntary [Recovered/Resolved]
